FAERS Safety Report 6516823-9 (Version None)
Quarter: 2009Q4

REPORT INFORMATION
  Report Type: 
  Country: None (occurrence: None)
  Receive Date: 20091223
  Receipt Date: 20091215
  Transmission Date: 20100525
  Serious: Yes (Hospitalization)
  Sender: FDA-Public Use
  Company Number: PHHO2009US15649

PATIENT
  Sex: Male
  Weight: 72.4 kg

DRUGS (2)
  1. AFINITOR [Suspect]
     Indication: SARCOMA
     Dosage: 10MG/ DAY
     Dates: start: 20090810, end: 20091212
  2. LORAZEPAM [Concomitant]

REACTIONS (5)
  - DYSPNOEA [None]
  - GASTROENTERITIS [None]
  - MALAISE [None]
  - NAUSEA [None]
  - VOMITING [None]
